FAERS Safety Report 10391795 (Version 1)
Quarter: 2014Q3

REPORT INFORMATION
  Report Type: Spontaneous
  Country: US (occurrence: US)
  Receive Date: 20140819
  Receipt Date: 20140819
  Transmission Date: 20150326
  Serious: Yes (Hospitalization, Other)
  Sender: FDA-Public Use
  Company Number: US-ROCHE-1450621

PATIENT
  Age: 58 Year
  Sex: Female

DRUGS (57)
  1. PAROXETINE [Concomitant]
     Active Substance: PAROXETINE\PAROXETINE HYDROCHLORIDE
  2. GABITRIL [Concomitant]
     Active Substance: TIAGABINE HYDROCHLORIDE
  3. CIPROFLOXACIN. [Concomitant]
     Active Substance: CIPROFLOXACIN
  4. MIRTAZAPINE. [Concomitant]
     Active Substance: MIRTAZAPINE
  5. CHLORPROMAZINE [Concomitant]
     Active Substance: CHLORPROMAZINE
  6. VAGIFEM [Concomitant]
     Active Substance: ESTRADIOL
  7. FOSAMAX [Suspect]
     Active Substance: ALENDRONATE SODIUM
     Indication: OSTEOPOROSIS
     Dosage: SINGLE DOSE
     Route: 048
     Dates: start: 20050929, end: 20050929
  8. QUININE SULFATE. [Concomitant]
     Active Substance: QUININE SULFATE
  9. CLONAZEPAM. [Concomitant]
     Active Substance: CLONAZEPAM
     Route: 065
  10. CLARINEX (UNITED STATES) [Concomitant]
  11. ACTONEL [Suspect]
     Active Substance: RISEDRONATE SODIUM
     Indication: OSTEOPOROSIS
     Route: 048
     Dates: start: 20041206, end: 20060313
  12. AMOXICILLIN. [Concomitant]
     Active Substance: AMOXICILLIN
  13. MUPIROCIN. [Concomitant]
     Active Substance: MUPIROCIN
  14. CHLORAL HYDRATE [Concomitant]
     Active Substance: CHLORAL HYDRATE
  15. HALOPERIDOL LACTATE. [Concomitant]
     Active Substance: HALOPERIDOL LACTATE
  16. PYRIDIUM [Concomitant]
     Active Substance: PHENAZOPYRIDINE
  17. CARAFATE [Concomitant]
     Active Substance: SUCRALFATE
  18. CYMBALTA [Concomitant]
     Active Substance: DULOXETINE HYDROCHLORIDE
  19. ZYRTEC [Concomitant]
     Active Substance: CETIRIZINE HYDROCHLORIDE
  20. TERAZOSIN [Concomitant]
     Active Substance: TERAZOSIN\TERAZOSIN HYDROCHLORIDE
  21. RECLAST [Suspect]
     Active Substance: ZOLEDRONIC ACID
     Indication: OSTEOPOROSIS
     Route: 065
     Dates: start: 201011, end: 20111129
  22. CIMETIDINE [Concomitant]
     Active Substance: CIMETIDINE
  23. PREVIDENT [Concomitant]
     Active Substance: SODIUM FLUORIDE
  24. BENZTROPINE [Concomitant]
     Active Substance: BENZTROPINE
  25. ACIPHEX [Concomitant]
     Active Substance: RABEPRAZOLE SODIUM
  26. PRECOSE [Concomitant]
     Active Substance: ACARBOSE
  27. NALTREXONE [Concomitant]
     Active Substance: NALTREXONE
  28. PREMARIN [Concomitant]
     Active Substance: ESTROGENS, CONJUGATED
  29. FERGON (UNITED STATES) [Concomitant]
  30. SEROQUEL [Concomitant]
     Active Substance: QUETIAPINE FUMARATE
  31. ZOFRAN [Concomitant]
     Active Substance: ONDANSETRON HYDROCHLORIDE
  32. MICARDIS [Concomitant]
     Active Substance: TELMISARTAN
  33. ZOMIG [Concomitant]
     Active Substance: ZOLMITRIPTAN
  34. SONATA (UNITED STATES) [Concomitant]
  35. NITROFURANTOIN. [Concomitant]
     Active Substance: NITROFURANTOIN
  36. ORPHENADRINE [Concomitant]
     Active Substance: ORPHENADRINE
  37. MECLIZINE [Concomitant]
     Active Substance: MECLIZINE\MECLIZINE HYDROCHLORIDE
  38. HYDROXYZINE PAMOATE. [Concomitant]
     Active Substance: HYDROXYZINE PAMOATE
  39. TOPAMAX [Concomitant]
     Active Substance: TOPIRAMATE
  40. BONIVA [Suspect]
     Active Substance: IBANDRONATE SODIUM
     Indication: OSTEOPOROSIS
     Route: 048
     Dates: start: 20060306, end: 20091130
  41. SYNTHROID [Concomitant]
     Active Substance: LEVOTHYROXINE SODIUM
  42. AXERT [Concomitant]
     Active Substance: ALMOTRIPTAN MALATE
  43. ENABLEX [Concomitant]
     Active Substance: DARIFENACIN\DARIFENACIN HYDROBROMIDE
  44. TRIAMCINOLONE [Concomitant]
     Active Substance: TRIAMCINOLONE
  45. NORVASC [Concomitant]
     Active Substance: AMLODIPINE BESYLATE
  46. DOXAZOSIN [Concomitant]
     Active Substance: DOXAZOSIN\DOXAZOSIN MESYLATE
  47. VITAMIN B12 [Concomitant]
     Active Substance: CYANOCOBALAMIN
  48. PREVALITE [Concomitant]
     Active Substance: CHOLESTYRAMINE
  49. LUNESTA [Concomitant]
     Active Substance: ESZOPICLONE
  50. ALLEGRA-D [Concomitant]
     Active Substance: FEXOFENADINE\PSEUDOEPHEDRINE
  51. CYCLOBENZAPRINE [Concomitant]
     Active Substance: CYCLOBENZAPRINE
  52. DOXEPIN [Concomitant]
     Active Substance: DOXEPIN
  53. DIAZEPAM. [Concomitant]
     Active Substance: DIAZEPAM
     Route: 065
  54. FEXOFENADINE [Concomitant]
     Active Substance: FEXOFENADINE\FEXOFENADINE HYDROCHLORIDE
  55. CARISOPRODOL. [Concomitant]
     Active Substance: CARISOPRODOL
  56. VITAMIN C [Concomitant]
     Active Substance: ASCORBIC ACID
  57. EXCEDRIN MIGRAINE [Concomitant]
     Active Substance: ACETAMINOPHEN\ASPIRIN\CAFFEINE

REACTIONS (3)
  - Stress fracture [Unknown]
  - Femur fracture [Recovering/Resolving]
  - Low turnover osteopathy [Unknown]

NARRATIVE: CASE EVENT DATE: 20090908
